FAERS Safety Report 6547771-6 (Version None)
Quarter: 2010Q1

REPORT INFORMATION
  Report Type: 
  Country: None (occurrence: None)
  Receive Date: 20100124
  Receipt Date: 20091003
  Transmission Date: 20100710
  Serious: Yes (Hospitalization, Other)
  Sender: FDA-Public Use
  Company Number: FR-ALEXION-A200800182

PATIENT

DRUGS (26)
  1. SOLIRIS [Suspect]
     Indication: HAEMOLYTIC URAEMIC SYNDROME
     Dosage: 900 MG, QW
     Route: 042
     Dates: start: 20080708, end: 20080731
  2. SOLIRIS [Suspect]
     Dosage: 1200 MG, Q2W
     Route: 042
  3. LUTENYL [Suspect]
     Route: 048
     Dates: end: 20080723
  4. AMLOR [Suspect]
     Indication: HYPERTENSION
     Dosage: 5 MG, QD
     Dates: start: 20080630, end: 20080704
  5. AMLOR [Suspect]
     Dosage: 10 MG, QD
     Dates: start: 20080704, end: 20080723
  6. BACTRIM [Suspect]
     Dosage: UNK, HALF QD
     Route: 048
  7. BACTRIM [Suspect]
     Dosage: 4 QD
     Route: 048
     Dates: start: 20080616, end: 20080715
  8. RAPAMUNE [Concomitant]
     Indication: PROPHYLAXIS AGAINST TRANSPLANT REJECTION
     Dosage: 2 MG, QD
     Route: 048
  9. RAPAMUNE [Concomitant]
     Dosage: 3 MG, QD
     Route: 048
     Dates: start: 20080604, end: 20080618
  10. RAPAMUNE [Concomitant]
     Dosage: 4 MG, QD
     Dates: start: 20080618
  11. MYFORTIC /01275101/ [Concomitant]
     Indication: PROPHYLAXIS AGAINST TRANSPLANT REJECTION
     Dosage: 720 MG, BID
  12. CORTANCYL [Concomitant]
     Indication: PROPHYLAXIS AGAINST TRANSPLANT REJECTION
     Dosage: 60 MG, QD
     Route: 048
     Dates: end: 20080723
  13. CORTANCYL [Concomitant]
     Dosage: 30 MG, QD
     Route: 048
     Dates: start: 20080723
  14. TAHOR [Concomitant]
     Indication: HYPERCHOLESTEROLAEMIA
     Dosage: 40 UNK, QD
     Route: 048
     Dates: start: 20080530
  15. PAROXETINE HCL [Concomitant]
     Dosage: 20 MG, QD
     Route: 048
  16. INEXIUM /01479302/ [Concomitant]
     Dosage: 20 UNK, QD
     Route: 048
     Dates: start: 20080611
  17. SODIUM BICARBONATE [Concomitant]
     Indication: ACIDOSIS
     Dosage: 4 G, QD
     Route: 048
     Dates: end: 20080715
  18. SODIUM BICARBONATE [Concomitant]
     Dosage: 6 G, QD
     Route: 048
     Dates: start: 20080715
  19. ARANESP [Concomitant]
     Indication: ANAEMIA
     Dosage: 60 UG, WEEKLY
     Route: 058
  20. CIPROFLOXACIN HCL [Concomitant]
     Indication: PROPHYLAXIS
     Dosage: 500 MG, QD
     Route: 048
     Dates: start: 20080708, end: 20080715
  21. ROVALCYTE                          /01542201/ [Concomitant]
     Indication: ORAL CANDIDIASIS
     Dosage: 450/ 1 EVERY 2 DAYS
     Route: 048
     Dates: start: 20080702
  22. STILNOX                            /00914901/ [Concomitant]
     Dosage: 1, QD
     Route: 048
  23. KALEORID [Concomitant]
     Dosage: 100 UNK, QD
     Dates: start: 20080715
  24. MENACTRA [Concomitant]
     Indication: IMMUNISATION
     Dosage: UNK, SINGLE
     Dates: start: 20080704, end: 20080704
  25. COTRIMOXAZOLE [Suspect]
  26. CONTRACEPTION [Concomitant]

REACTIONS (8)
  - ANAEMIA [None]
  - CHEST PAIN [None]
  - HAEMOGLOBIN DECREASED [None]
  - HAEMOLYSIS [None]
  - HEADACHE [None]
  - METRORRHAGIA [None]
  - OEDEMA [None]
  - RENAL IMPAIRMENT [None]
